FAERS Safety Report 4845281-5 (Version None)
Quarter: 2005Q4

REPORT INFORMATION
  Report Type: 
  Country: None (occurrence: None)
  Receive Date: 20051125
  Receipt Date: 20051115
  Transmission Date: 20060501
  Serious: Yes (Other)
  Sender: FDA-Public Use
  Company Number: 2005157224

PATIENT
  Age: 40 Year
  Sex: Male
  Weight: 74.8435 kg

DRUGS (4)
  1. NEURONTIN [Suspect]
     Indication: CONVULSION
     Dosage: 6600 MG (2200 MG, 3 IN 1 D)
  2. PREVACID [Concomitant]
  3. EXCEDRIN /USA/ (ACETYSALICYLIC ACID, CAFFEINE, PARACEMATOL, SALICYLAMI [Concomitant]
  4. ACETAMINOPHEN [Concomitant]

REACTIONS (8)
  - ASPIRATION [None]
  - CONDITION AGGRAVATED [None]
  - GALLBLADDER DISORDER [None]
  - GASTRIC ULCER [None]
  - HERNIA [None]
  - INCISIONAL HERNIA [None]
  - NASAL DISORDER [None]
  - OESOPHAGEAL CARCINOMA [None]
